FAERS Safety Report 5113449-9 (Version None)
Quarter: 2006Q3

REPORT INFORMATION
  Report Type: 
  Country: None (occurrence: None)
  Receive Date: 20060920
  Receipt Date: 20060901
  Transmission Date: 20061208
  Serious: Yes (Hospitalization)
  Sender: FDA-Public Use
  Company Number: 2006001732

PATIENT
  Age: 57 Year
  Sex: Male

DRUGS (2)
  1. ERLOTINIB (TABLET)  (ERLOTINIB HCL) [Suspect]
     Indication: NON-SMALL CELL LUNG CANCER
     Dosage: 150 MG (QD), ORAL
     Route: 048
     Dates: start: 20051115, end: 20060622
  2. ERLOTINIB (TABLET)  (ERLOTINIB HCL) [Suspect]
     Indication: NON-SMALL CELL LUNG CANCER
     Dosage: 150 MG (QD), ORAL
     Route: 048
     Dates: start: 20060627

REACTIONS (3)
  - ALANINE AMINOTRANSFERASE INCREASED [None]
  - GASTROENTERITIS [None]
  - PLATELET COUNT DECREASED [None]
